FAERS Safety Report 9215808 (Version 1)
Quarter: 2013Q2

REPORT INFORMATION
  Report Type: Spontaneous
  Country: CA (occurrence: CA)
  Receive Date: 20130408
  Receipt Date: 20130408
  Transmission Date: 20140414
  Serious: Yes (Hospitalization, Other)
  Sender: FDA-Public Use
  Company Number: CA-JNJFOC-20120113002

PATIENT
  Sex: Male

DRUGS (2)
  1. REMICADE [Suspect]
     Indication: CROHN^S DISEASE
     Dosage: 5 MG/KG AT 0, 2, 6 WEEKS
     Route: 042
     Dates: start: 20111107, end: 201112
  2. METHOTREXATE [Concomitant]
     Indication: CROHN^S DISEASE
     Route: 048
     Dates: start: 201111, end: 201112

REACTIONS (3)
  - Crohn^s disease [Unknown]
  - Fistula [Unknown]
  - Drug ineffective [Unknown]
